FAERS Safety Report 15566774 (Version 3)
Quarter: 2020Q4

REPORT INFORMATION
  Report Type: Spontaneous
  Country: US (occurrence: US)
  Receive Date: 20181030
  Receipt Date: 20201102
  Transmission Date: 20210113
  Serious: No
  Sender: FDA-Public Use
  Company Number: US-PFIZER INC-2018437143

PATIENT
  Age: 59 Year
  Sex: Female
  Weight: 81.19 kg

DRUGS (2)
  1. PROTONIX [Suspect]
     Active Substance: PANTOPRAZOLE SODIUM
     Indication: GASTROOESOPHAGEAL REFLUX DISEASE
  2. PROTONIX [Suspect]
     Active Substance: PANTOPRAZOLE SODIUM
     Indication: BARRETT^S OESOPHAGUS
     Dosage: 40 MG, 1X/DAY IN THE MORNING (EVERY MORNING BEFORE EAT OR DRINK BY MOUTH)
     Route: 048

REACTIONS (4)
  - Hypoaesthesia [Recovering/Resolving]
  - Illness [Unknown]
  - Drug ineffective [Unknown]
  - Urticaria [Unknown]

NARRATIVE: CASE EVENT DATE: 20181022
